FAERS Safety Report 25688710 (Version 1)
Quarter: 2025Q3

REPORT INFORMATION
  Report Type: Spontaneous
  Country: US (occurrence: US)
  Receive Date: 20250818
  Receipt Date: 20250818
  Transmission Date: 20251020
  Serious: No
  Sender: RECKITT BENCKISER
  Company Number: US-PROD-AS2-212756134-20-24-USA-RB-0014993

PATIENT
  Age: 87 Year
  Sex: Male

DRUGS (2)
  1. MUCINEX MAXIMUM STRENGTH [Suspect]
     Active Substance: GUAIFENESIN
     Indication: Cough
     Dosage: TOOK 1200 MG, QD
     Route: 048
  2. MUCINEX MAXIMUM STRENGTH [Suspect]
     Active Substance: GUAIFENESIN
     Indication: Productive cough

REACTIONS (2)
  - Drug ineffective [Not Recovered/Not Resolved]
  - Incorrect product administration duration [Unknown]
